FAERS Safety Report 22085480 (Version 3)
Quarter: 2023Q1

REPORT INFORMATION
  Report Type: Report from Study
  Country: US (occurrence: US)
  Receive Date: 20230310
  Receipt Date: 20230331
  Transmission Date: 20230418
  Serious: No
  Sender: FDA-Public Use
  Company Number: US-BIOGEN-2023BI01190838

PATIENT
  Age: 81 Year
  Sex: Male
  Weight: 58.6 kg

DRUGS (12)
  1. ADUCANUMAB [Suspect]
     Active Substance: ADUCANUMAB
     Indication: Dementia Alzheimer^s type
     Route: 050
     Dates: start: 20220913, end: 20220913
  2. ADUCANUMAB [Suspect]
     Active Substance: ADUCANUMAB
     Route: 050
     Dates: start: 20221006, end: 20221006
  3. ADUCANUMAB [Suspect]
     Active Substance: ADUCANUMAB
     Route: 050
     Dates: start: 20221110, end: 20221110
  4. ADUCANUMAB [Suspect]
     Active Substance: ADUCANUMAB
     Route: 050
     Dates: start: 20221208, end: 20221208
  5. ADUCANUMAB [Suspect]
     Active Substance: ADUCANUMAB
     Route: 050
     Dates: start: 20230112, end: 20230112
  6. ADUCANUMAB [Suspect]
     Active Substance: ADUCANUMAB
     Route: 050
     Dates: start: 20230202, end: 20230202
  7. AMYVID [Suspect]
     Active Substance: FLORBETAPIR F-18
     Indication: Positron emission tomogram
     Route: 050
     Dates: start: 20220901, end: 20220901
  8. FLORQUINITAU F-18 [Suspect]
     Active Substance: FLORQUINITAU F-18
     Indication: Positron emission tomogram
     Route: 050
     Dates: start: 20221005, end: 20221005
  9. MEMANTINE [Concomitant]
     Active Substance: MEMANTINE
     Route: 050
     Dates: start: 20220115
  10. DONEPEZIL [Concomitant]
     Active Substance: DONEPEZIL
     Route: 050
     Dates: start: 202205
  11. LOSARTAN [Concomitant]
     Active Substance: LOSARTAN
     Route: 050
     Dates: start: 20220301
  12. ATORVASTATIN [Concomitant]
     Active Substance: ATORVASTATIN
     Route: 050
     Dates: start: 20220817

REACTIONS (2)
  - Amyloid related imaging abnormality-oedema/effusion [Not Recovered/Not Resolved]
  - Amyloid related imaging abnormality-microhaemorrhages and haemosiderin deposits [Not Recovered/Not Resolved]

NARRATIVE: CASE EVENT DATE: 20230216
